FAERS Safety Report 10890839 (Version 3)
Quarter: 2015Q4

REPORT INFORMATION
  Report Type: Spontaneous
  Country: FR (occurrence: FR)
  Receive Date: 20150305
  Receipt Date: 20151214
  Transmission Date: 20160304
  Serious: Yes (Life-Threatening, Other)
  Sender: FDA-Public Use
  Company Number: FR-GLAXOSMITHKLINE-FR2014GSK038137

PATIENT
  Age: 54 Year
  Sex: Female

DRUGS (2)
  1. STREFEN [Suspect]
     Active Substance: FLURBIPROFEN
     Indication: NASOPHARYNGITIS
     Dosage: 8.75 MG, SINGLE
     Route: 048
  2. ZINNAT [Suspect]
     Active Substance: CEFUROXIME AXETIL
     Indication: NASOPHARYNGITIS
     Dosage: 1 UNK, SINGLE
     Route: 048

REACTIONS (14)
  - Thermal burn [Recovered/Resolved]
  - Dizziness [Recovered/Resolved]
  - Tachycardia [Recovered/Resolved]
  - Hypotension [Recovering/Resolving]
  - Shock [Recovered/Resolved]
  - Malaise [Recovered/Resolved]
  - Pruritus [Recovered/Resolved]
  - Mucosal inflammation [Recovered/Resolved]
  - Gingival oedema [Recovered/Resolved]
  - Anaphylactic shock [Recovered/Resolved]
  - Lip oedema [Recovered/Resolved]
  - Vomiting [Recovered/Resolved]
  - Pigmentation disorder [Recovered/Resolved]
  - Cyanosis [Recovered/Resolved]

NARRATIVE: CASE EVENT DATE: 2014
